FAERS Safety Report 6669403-9 (Version None)
Quarter: 2010Q2

REPORT INFORMATION
  Report Type: 
  Country: None (occurrence: None)
  Receive Date: 20100402
  Receipt Date: 20100318
  Transmission Date: 20101027
  Serious: Yes (Other)
  Sender: FDA-Public Use
  Company Number: 231327J09USA

PATIENT
  Age: 30 Year
  Sex: Female
  Weight: 61 kg

DRUGS (8)
  1. REBIF [Suspect]
     Indication: MULTIPLE SCLEROSIS
     Dosage: 44 MCG, 3 IN 1 WEEKS, SUBCUTANEOUS
     Route: 058
     Dates: start: 20040925, end: 20091023
  2. WELLBUTRIN [Concomitant]
  3. MINOCYCLINE HCL [Concomitant]
  4. SPIRONOLACTONE [Concomitant]
  5. DETROL LA [Concomitant]
  6. LEVOTHYROXINE SODIUM [Concomitant]
  7. MULTIVITAMIN (MUILTIVITAMIN) [Concomitant]
  8. CRYSELLE (ETHINYL ESTRADIOL W/NORGESTREL) [Concomitant]

REACTIONS (9)
  - HYPERTHYROIDISM [None]
  - INFLAMMATION [None]
  - INJECTION SITE HAEMATOMA [None]
  - INJECTION SITE NECROSIS [None]
  - INJECTION SITE PAIN [None]
  - INJECTION SITE REACTION [None]
  - INJECTION SITE SCAR [None]
  - INJECTION SITE SWELLING [None]
  - PURULENCE [None]
